FAERS Safety Report 9849236 (Version 1)
Quarter: 2013Q4

REPORT INFORMATION
  Report Type: Spontaneous
  Country: US (occurrence: None)
  Receive Date: 20131226
  Receipt Date: 20131226
  Transmission Date: 20140711
  Serious: Yes (Other)
  Sender: FDA-Public Use
  Company Number: PHEH2012US022214

PATIENT
  Age: 57 Year
  Sex: Male

DRUGS (4)
  1. ZOMETA (ZOLEDRONATE) SOLUTION FOR INJECTION [Suspect]
     Indication: PLASMA CELL MYELOMA
     Dosage: 4 MG, Q 28 DAYS, INTRAVENOUS
     Route: 042
     Dates: start: 20100924, end: 20120629
  2. VELCADE (BORTEZOMIB) [Concomitant]
  3. DIURETICS (NO INGREDIENTS/SUBSTANCES) [Concomitant]
  4. ANTINEOPLASTIC AGENTS (NO INGREDIENTS/SUBSTANCES) [Concomitant]

REACTIONS (2)
  - Renal impairment [None]
  - Renal function test abnormal [None]
